FAERS Safety Report 9206120 (Version 3)
Quarter: 2014Q1

REPORT INFORMATION
  Report Type: Spontaneous
  Country: US (occurrence: US)
  Receive Date: 20130403
  Receipt Date: 20140117
  Transmission Date: 20141002
  Serious: Yes (Other)
  Sender: FDA-Public Use
  Company Number: US-BAYER-2013-040245

PATIENT
  Age: 18 Year
  Sex: Female
  Weight: 100.68 kg

DRUGS (2)
  1. YAZ [Suspect]
     Indication: CONTRACEPTION
     Dosage: UNK
     Dates: start: 20090407, end: 20110720
  2. WELLBUTRIN [Concomitant]
     Indication: ANXIETY
     Dosage: UNK

REACTIONS (10)
  - Gallbladder disorder [None]
  - Cholecystitis chronic [None]
  - Injury [None]
  - Pain [None]
  - Emotional distress [None]
  - Frequent bowel movements [None]
  - Abdominal pain upper [None]
  - Vomiting [None]
  - Anxiety [None]
  - Abdominal pain upper [None]
